FAERS Safety Report 5149383-8 (Version None)
Quarter: 2006Q4

REPORT INFORMATION
  Report Type: 
  Country: None (occurrence: None)
  Receive Date: 20061113
  Receipt Date: 20051209
  Transmission Date: 20070319
  Serious: No
  Sender: FDA-Public Use
  Company Number: 428255

PATIENT
  Age: 66 Year
  Sex: Female

DRUGS (8)
  1. COREG [Suspect]
     Dosage: 12MG TWICE PER DAY
     Route: 048
     Dates: start: 19950101
  2. ISMO [Concomitant]
  3. LANOXIN [Concomitant]
  4. MONOPRIL [Concomitant]
  5. NORVASC [Concomitant]
  6. VYTORIN [Concomitant]
  7. ASPIRIN [Concomitant]
  8. FISH OIL [Concomitant]

REACTIONS (1)
  - FATIGUE [None]
